FAERS Safety Report 6751877-6 (Version None)
Quarter: 2010Q2

REPORT INFORMATION
  Report Type: 
  Country: None (occurrence: None)
  Receive Date: 20100526
  Receipt Date: 20100526
  Transmission Date: 20101027
  Serious: No
  Sender: FDA-Public Use
  Company Number: 306722

PATIENT

DRUGS (3)
  1. VICTOZA [Suspect]
     Indication: TYPE 2 DIABETES MELLITUS
     Dosage: 0.6, QD, SUBCUTANEOUS; 1.2 U, QD, SUBCUTANESOUS; 0.6, SUBCUTANEOUS
     Route: 058
  2. METFORMIN HCL [Concomitant]
  3. JANUVIA [Concomitant]

REACTIONS (4)
  - ASTHENIA [None]
  - FEELING ABNORMAL [None]
  - LISTLESS [None]
  - NAUSEA [None]
